FAERS Safety Report 9719961 (Version 2)
Quarter: 2013Q4

REPORT INFORMATION
  Report Type: Spontaneous
  Country: US (occurrence: US)
  Receive Date: 20131128
  Receipt Date: 20131128
  Transmission Date: 20140711
  Serious: Yes (Disabling)
  Sender: FDA-Public Use
  Company Number: US-GE HEALTHCARE MEDICAL DIAGNOSTICS-OSCN-PR-0811S-0625

PATIENT
  Age: 32 Year
  Sex: Male

DRUGS (6)
  1. GADOLINIUM (UNSPECIFIED) [Suspect]
     Indication: PRODUCT USED FOR UNKNOWN INDICATION
     Dates: start: 20040203, end: 20040203
  2. GADOLINIUM (UNSPECIFIED) [Suspect]
     Dates: start: 20040706, end: 20040706
  3. MAGNEVIST [Suspect]
     Indication: MENINGOCOCCAL BACTERAEMIA
     Dates: start: 20031216, end: 20031216
  4. MAGNEVIST [Suspect]
     Indication: OSTEOMYELITIS
     Dates: start: 20040225, end: 20040225
  5. MAGNEVIST [Suspect]
     Indication: PYREXIA
     Dates: start: 20040115, end: 20040115
  6. MAGNEVIST [Suspect]
     Dates: start: 20040706, end: 20040706

REACTIONS (1)
  - Nephrogenic systemic fibrosis [Not Recovered/Not Resolved]
